FAERS Safety Report 22193642 (Version 1)
Quarter: 2023Q2

REPORT INFORMATION
  Report Type: Spontaneous
  Country: FR (occurrence: FR)
  Receive Date: 20230410
  Receipt Date: 20230410
  Transmission Date: 20230721
  Serious: Yes (Other)
  Sender: FDA-Public Use
  Company Number: None

PATIENT
  Age: 41 Year
  Sex: Female
  Weight: 47 kg

DRUGS (6)
  1. PACLITAXEL [Suspect]
     Active Substance: PACLITAXEL
     Indication: Triple negative breast cancer
     Route: 065
     Dates: start: 20221019, end: 20221228
  2. CARBOPLATIN [Suspect]
     Active Substance: CARBOPLATIN
     Indication: Triple negative breast cancer
     Dosage: 2AUC /WEEK
     Route: 065
     Dates: start: 20221019, end: 20221228
  3. KEYTRUDA [Suspect]
     Active Substance: PEMBROLIZUMAB
     Indication: Triple negative breast cancer
     Route: 065
     Dates: start: 20221019
  4. LORMETAZEPAM [Concomitant]
     Active Substance: LORMETAZEPAM
     Indication: Product used for unknown indication
  5. PROZAC [Concomitant]
     Active Substance: FLUOXETINE HYDROCHLORIDE
     Indication: Product used for unknown indication
  6. OXAZEPAM [Concomitant]
     Active Substance: OXAZEPAM
     Indication: Product used for unknown indication

REACTIONS (6)
  - Mucosal inflammation [Recovering/Resolving]
  - Nausea [Recovering/Resolving]
  - Anaemia [Recovering/Resolving]
  - Asthenia [Recovering/Resolving]
  - Epistaxis [Recovering/Resolving]
  - Gingival bleeding [Recovering/Resolving]

NARRATIVE: CASE EVENT DATE: 20221128
